FAERS Safety Report 6542815-X (Version None)
Quarter: 2010Q1

REPORT INFORMATION
  Report Type: 
  Country: None (occurrence: None)
  Receive Date: 20100114
  Receipt Date: 20100104
  Transmission Date: 20100710
  Serious: Yes (Other)
  Sender: FDA-Public Use
  Company Number: 1000011230

PATIENT
  Sex: Female

DRUGS (3)
  1. ESCITALOPRAM [Suspect]
     Dosage: (5 MG), ORAL, (10 MG), ORAL
     Route: 048
     Dates: start: 20091222, end: 20091228
  2. ESCITALOPRAM [Suspect]
     Dosage: (5 MG), ORAL, (10 MG), ORAL
     Route: 048
     Dates: start: 20091229
  3. SOBRIL [Concomitant]

REACTIONS (9)
  - CONFUSIONAL STATE [None]
  - FEELING OF DESPAIR [None]
  - HAIR DISORDER [None]
  - HYPOAESTHESIA [None]
  - INCOHERENT [None]
  - SPEECH DISORDER [None]
  - SUICIDAL IDEATION [None]
  - THINKING ABNORMAL [None]
  - TREMOR [None]
